FAERS Safety Report 6446509-0 (Version None)
Quarter: 2009Q4

REPORT INFORMATION
  Report Type: 
  Country: None (occurrence: None)
  Receive Date: 20091116
  Receipt Date: 20091110
  Transmission Date: 20100525
  Serious: Yes (Other)
  Sender: FDA-Public Use
  Company Number: 1000010017

PATIENT
  Age: 12 Year
  Sex: Female
  Weight: 61.2356 kg

DRUGS (4)
  1. CELEXA [Suspect]
     Indication: DEPRESSION
     Dosage: ORAL
     Route: 048
     Dates: start: 20090101
  2. VYVANSE [Suspect]
     Indication: ATTENTION DEFICIT/HYPERACTIVITY DISORDER
     Dosage: (1 IN 1 D), ORAL, 50 MG (50 MG, 1 IN 1 D), ORAL
     Route: 048
     Dates: start: 20090101
  3. VYVANSE [Suspect]
     Indication: DEPRESSION
     Dosage: (1 IN 1 D), ORAL, 50 MG (50 MG, 1 IN 1 D), ORAL
     Route: 048
     Dates: start: 20090101
  4. VISTARIL [Concomitant]

REACTIONS (6)
  - ABNORMAL BEHAVIOUR [None]
  - ANXIETY [None]
  - INTENTIONAL SELF-INJURY [None]
  - ONYCHOPHAGIA [None]
  - PSYCHOMOTOR HYPERACTIVITY [None]
  - TRICHOTILLOMANIA [None]
